FAERS Safety Report 17356665 (Version 2)
Quarter: 2020Q1

REPORT INFORMATION
  Report Type: Report from Study
  Country: US (occurrence: US)
  Receive Date: 20200131
  Receipt Date: 20200210
  Transmission Date: 20200409
  Serious: Yes (Hospitalization)
  Sender: FDA-Public Use
  Company Number: US-ACTELION-A-NJ2019-194709

PATIENT
  Age: 61 Year
  Sex: Female
  Weight: 96.6 kg

DRUGS (2)
  1. OPSUMIT [Suspect]
     Active Substance: MACITENTAN
     Indication: PULMONARY HYPERTENSION
     Dosage: 10 MG, QD
     Route: 048
     Dates: start: 20180629
  2. ADEMPAS [Concomitant]
     Active Substance: RIOCIGUAT
     Dosage: UNK, TID

REACTIONS (4)
  - Dyspnoea [Not Recovered/Not Resolved]
  - Endarterectomy [Unknown]
  - Cardiac operation [Unknown]
  - Lung operation [Unknown]

NARRATIVE: CASE EVENT DATE: 201907
